FAERS Safety Report 9047114 (Version 1)
Quarter: 2013Q1

REPORT INFORMATION
  Report Type: Spontaneous
  Country: US (occurrence: None)
  Receive Date: 20130130
  Receipt Date: 20130130
  Transmission Date: 20140127
  Serious: Yes (Hospitalization, Other)
  Sender: FDA-Public Use
  Company Number: None

PATIENT
  Age: 62 Year
  Sex: Male
  Weight: 107.6 kg

DRUGS (1)
  1. ROSUVASTATIN [Suspect]
     Route: 048
     Dates: start: 20091203, end: 20120807

REACTIONS (6)
  - Arthralgia [None]
  - Gait disturbance [None]
  - Renal failure acute [None]
  - Myalgia [None]
  - Blood creatine phosphokinase increased [None]
  - Blood lactate dehydrogenase increased [None]
